FAERS Safety Report 17308540 (Version 6)
Quarter: 2020Q1

REPORT INFORMATION
  Report Type: Spontaneous
  Country: US (occurrence: US)
  Receive Date: 20200123
  Receipt Date: 20200213
  Transmission Date: 20200409
  Serious: Yes (Life-Threatening, Hospitalization, Other)
  Sender: FDA-Public Use
  Company Number: US-BIOGEN-2020BI00827399

PATIENT
  Age: 38 Year
  Sex: Female

DRUGS (1)
  1. SPINRAZA [Suspect]
     Active Substance: NUSINERSEN
     Indication: SPINAL MUSCULAR ATROPHY
     Route: 065

REACTIONS (10)
  - Pneumonia [Recovered/Resolved]
  - Bronchitis [Not Recovered/Not Resolved]
  - Cardio-respiratory arrest [Not Recovered/Not Resolved]
  - Procedural pneumothorax [Not Recovered/Not Resolved]
  - Urinary tract infection fungal [Not Recovered/Not Resolved]
  - H1N1 influenza [Recovered/Resolved]
  - Bacteraemia [Not Recovered/Not Resolved]
  - Mechanical ventilation complication [Not Recovered/Not Resolved]
  - Tracheal disorder [Not Recovered/Not Resolved]
  - Procedural pain [Recovered/Resolved]

NARRATIVE: CASE EVENT DATE: 20200107
